FAERS Safety Report 7750290-2 (Version None)
Quarter: 2011Q3

REPORT INFORMATION
  Report Type: 
  Country: None (occurrence: None)
  Receive Date: 20110914
  Receipt Date: 20110901
  Transmission Date: 20111222
  Serious: Yes (Hospitalization, Other)
  Sender: FDA-Public Use
  Company Number: US-ELI_LILLY_AND_COMPANY-US201108009476

PATIENT
  Sex: Female

DRUGS (5)
  1. NORCO [Concomitant]
  2. ANTIHYPERTENSIVES [Concomitant]
  3. GLYCOLAX [Concomitant]
  4. FORTEO [Suspect]
     Indication: OSTEOPOROSIS
     Dosage: 20 UG, QD
     Dates: start: 20110826, end: 20110826
  5. FORTEO [Suspect]
     Dosage: 20 UG, QD

REACTIONS (6)
  - FALL [None]
  - ABNORMAL DREAMS [None]
  - ALCOHOL INTOLERANCE [None]
  - FREQUENT BOWEL MOVEMENTS [None]
  - CONFUSIONAL STATE [None]
  - BACK PAIN [None]
